FAERS Safety Report 5821336-3 (Version None)
Quarter: 2008Q3

REPORT INFORMATION
  Report Type: 
  Country: None (occurrence: None)
  Receive Date: 20080724
  Receipt Date: 20080717
  Transmission Date: 20090109
  Serious: Yes (Disabling)
  Sender: FDA-Public Use
  Company Number: US-MERCK-0705USA02869

PATIENT
  Age: 41 Year
  Sex: Female

DRUGS (1)
  1. FOSAMAX [Suspect]
     Indication: OSTEOPOROSIS
     Route: 048
     Dates: start: 19951101, end: 20060501

REACTIONS (15)
  - ADVERSE DRUG REACTION [None]
  - ANXIETY [None]
  - BACK INJURY [None]
  - DENTAL CARIES [None]
  - DRY MOUTH [None]
  - GINGIVAL ABSCESS [None]
  - OEDEMA MOUTH [None]
  - ORAL INFECTION [None]
  - ORAL PAIN [None]
  - RAYNAUD'S PHENOMENON [None]
  - RIB FRACTURE [None]
  - TEMPOROMANDIBULAR JOINT SYNDROME [None]
  - TOOTH DISCOLOURATION [None]
  - TOOTH EXTRACTION [None]
  - TOOTH FRACTURE [None]
